FAERS Safety Report 21018248 (Version 2)
Quarter: 2023Q4

REPORT INFORMATION
  Report Type: Other
  Country: US (occurrence: None)
  Receive Date: 20220628
  Receipt Date: 20231205
  Transmission Date: 20240110
  Serious: Yes (Other)
  Sender: FDA-Public Use
  Company Number: US-ROCHE-2985450

PATIENT
  Age: 64 Year
  Sex: Female

DRUGS (16)
  1. ACTEMRA [Suspect]
     Active Substance: TOCILIZUMAB
     Indication: Retinal vasculitis
     Dosage: INJECT 1 SYRINGE?DATE OF TREATMENT: 05/JAN/2022, 02/FEB/2022, 09/MAR/2022, 06/APR/2022
     Route: 042
  2. ACTEMRA [Suspect]
     Active Substance: TOCILIZUMAB
     Indication: Macular degeneration
  3. ACTEMRA [Suspect]
     Active Substance: TOCILIZUMAB
     Indication: Retinal vasculitis
     Dosage: INJECT 162MG SUBCUTANEOUSLY EVERY 2 WEEK(S)
     Route: 058
  4. ACTEMRA [Suspect]
     Active Substance: TOCILIZUMAB
  5. ACTEMRA [Suspect]
     Active Substance: TOCILIZUMAB
  6. ACTEMRA [Suspect]
     Active Substance: TOCILIZUMAB
     Indication: Macular degeneration
  7. ACTEMRA [Suspect]
     Active Substance: TOCILIZUMAB
  8. ACTEMRA [Suspect]
     Active Substance: TOCILIZUMAB
  9. ACTEMRA [Suspect]
     Active Substance: TOCILIZUMAB
     Indication: Retinal vasculitis
     Route: 058
  10. ACTEMRA [Suspect]
     Active Substance: TOCILIZUMAB
  11. ACTEMRA [Suspect]
     Active Substance: TOCILIZUMAB
     Indication: Macular degeneration
  12. ACTEMRA [Suspect]
     Active Substance: TOCILIZUMAB
  13. TIMOLOL [Concomitant]
     Active Substance: TIMOLOL
  14. FOLIC ACID [Concomitant]
     Active Substance: FOLIC ACID
  15. METHOTREXATE [Concomitant]
     Active Substance: METHOTREXATE
  16. COMBIGAN [Concomitant]
     Active Substance: BRIMONIDINE TARTRATE\TIMOLOL MALEATE

REACTIONS (4)
  - Pancreatic cyst [Unknown]
  - Insomnia [Unknown]
  - Urticaria [Unknown]
  - Off label use [Unknown]
